FAERS Safety Report 10045823 (Version 2)
Quarter: 2014Q2

REPORT INFORMATION
  Report Type: Spontaneous
  Country: ES (occurrence: ES)
  Receive Date: 20140328
  Receipt Date: 20140410
  Transmission Date: 20141212
  Serious: Yes (Hospitalization)
  Sender: FDA-Public Use
  Company Number: PHHY2014ES036759

PATIENT
  Age: 35 Year
  Sex: Male

DRUGS (4)
  1. ALLOPURINOL [Suspect]
     Indication: HYPERURICAEMIA
     Dosage: 100 MG DAILY
  2. L-THYROXINE [Concomitant]
     Dosage: 100 MG DAILY
  3. HYDROCORTISONE [Concomitant]
     Dosage: 20 MG DAILY
  4. TESTOSTERONE [Concomitant]

REACTIONS (9)
  - Drug reaction with eosinophilia and systemic symptoms [Recovering/Resolving]
  - Splenomegaly [Recovering/Resolving]
  - Dermatitis exfoliative [Recovering/Resolving]
  - Dermatitis [Recovering/Resolving]
  - Parakeratosis [Recovering/Resolving]
  - Skin lesion [Recovering/Resolving]
  - Rash macular [Recovering/Resolving]
  - Conjunctival oedema [Recovering/Resolving]
  - Face oedema [Recovering/Resolving]
